FAERS Safety Report 9813868 (Version 2)
Quarter: 2014Q3

REPORT INFORMATION
  Report Type: Spontaneous
  Country: US (occurrence: US)
  Receive Date: 20140113
  Receipt Date: 20140731
  Transmission Date: 20150326
  Serious: Yes (Hospitalization, Other)
  Sender: FDA-Public Use
  Company Number: US-009507513-1401USA004082

PATIENT
  Sex: Female
  Weight: 72.73 kg

DRUGS (1)
  1. NUVARING [Suspect]
     Active Substance: ETHINYL ESTRADIOL\ETONOGESTREL
     Indication: PRODUCT USED FOR UNKNOWN INDICATION
     Dosage: QUANITY 1 USE AS DIRECTED
     Route: 067
     Dates: start: 20060526, end: 20060807

REACTIONS (4)
  - Bronchiectasis [Unknown]
  - Nephrolithiasis [Unknown]
  - Pulmonary embolism [Unknown]
  - Asthma [Unknown]

NARRATIVE: CASE EVENT DATE: 20060702
